FAERS Safety Report 20236212 (Version 1)
Quarter: 2021Q4

REPORT INFORMATION
  Report Type: Spontaneous
  Country: FR (occurrence: FR)
  Receive Date: 20211228
  Receipt Date: 20211228
  Transmission Date: 20220303
  Serious: Yes (Death, Hospitalization)
  Sender: FDA-Public Use
  Company Number: FR-Atnahs Limited-ATNAHS20211233462

PATIENT
  Age: 26 Year
  Sex: Male

DRUGS (9)
  1. VALIUM [Suspect]
     Active Substance: DIAZEPAM
     Indication: Mania
     Dosage: 15/30/30/30 DROPS / DAY
     Route: 048
     Dates: start: 20211029
  2. TRIMEPRAZINE [Suspect]
     Active Substance: TRIMEPRAZINE
     Indication: Mania
     Dosage: 20 DROPS IN THE EVENING
     Route: 048
     Dates: start: 20211029
  3. HALDOL [Suspect]
     Active Substance: HALOPERIDOL
     Indication: Mania
     Dosage: 100/50/100 MG / D
     Route: 048
     Dates: start: 20211106
  4. HALDOL [Suspect]
     Active Substance: HALOPERIDOL
     Route: 048
     Dates: start: 20211106
  5. ARIPIPRAZOLE [Suspect]
     Active Substance: ARIPIPRAZOLE
     Indication: Mania
     Dosage: 10 MG / DAY
     Route: 048
     Dates: start: 20211026, end: 20211104
  6. CYAMEMAZINE [Suspect]
     Active Substance: CYAMEMAZINE
     Indication: Mania
     Dosage: 200 DROPS / DAY
     Route: 048
     Dates: start: 20211016, end: 20211019
  7. ZOPICLONE [Suspect]
     Active Substance: ZOPICLONE
     Indication: Mania
     Dosage: 7.5MG IN THE EVENING
     Route: 048
     Dates: start: 20211019
  8. RISPERDAL [Suspect]
     Active Substance: RISPERIDONE
     Indication: Mania
     Dosage: 4 MG / DAY
     Route: 048
     Dates: start: 20211016, end: 20211029
  9. LOXAPINE [Suspect]
     Active Substance: LOXAPINE
     Indication: Mania
     Dosage: 75/75/75/75 MG
     Route: 048
     Dates: start: 20211019, end: 20211106

REACTIONS (2)
  - Ileus paralytic [Fatal]
  - Drug interaction [Fatal]

NARRATIVE: CASE EVENT DATE: 20211108
